FAERS Safety Report 15708043 (Version 1)
Quarter: 2018Q4

REPORT INFORMATION
  Report Type: Spontaneous
  Country: US (occurrence: US)
  Receive Date: 20181128
  Receipt Date: 20181128
  Transmission Date: 20190205
  Serious: Yes (Hospitalization)
  Sender: FDA-Public Use
  Company Number: None

PATIENT
  Sex: Male

DRUGS (2)
  1. HALOPER DEC INJ 100MG/ML [Suspect]
     Active Substance: HALOPERIDOL DECANOATE
  2. CLOZAPINE. [Suspect]
     Active Substance: CLOZAPINE

REACTIONS (5)
  - Hypersomnia [None]
  - Penis disorder [None]
  - Hypoaesthesia [None]
  - Aphasia [None]
  - Fall [None]
